FAERS Safety Report 15833211 (Version 1)
Quarter: 2019Q1

REPORT INFORMATION
  Report Type: Spontaneous
  Country: US (occurrence: US)
  Receive Date: 20190116
  Receipt Date: 20190116
  Transmission Date: 20190417
  Serious: Yes (Death)
  Sender: FDA-Public Use
  Company Number: None

PATIENT
  Age: 76 Year
  Sex: Female

DRUGS (7)
  1. SODIUM CHLORIDE 1GM [Concomitant]
  2. MIRTAZAPINE 15MG [Concomitant]
     Active Substance: MIRTAZAPINE
  3. SAMSCA [Suspect]
     Active Substance: TOLVAPTAN
     Indication: HYPONATRAEMIA
     Route: 048
     Dates: start: 20181226, end: 20190111
  4. DUONEB [Concomitant]
     Active Substance: ALBUTEROL SULFATE\IPRATROPIUM BROMIDE
  5. LASIX [Concomitant]
     Active Substance: FUROSEMIDE
  6. ALPRAZOLAM 0.25MG [Concomitant]
     Active Substance: ALPRAZOLAM
  7. SYNTHROID 0.1MG [Concomitant]

REACTIONS (1)
  - Death [None]

NARRATIVE: CASE EVENT DATE: 20190112
